FAERS Safety Report 10155311 (Version 1)
Quarter: 2014Q2

REPORT INFORMATION
  Report Type: Spontaneous
  Country: CA (occurrence: CA)
  Receive Date: 20140506
  Receipt Date: 20140506
  Transmission Date: 20141212
  Serious: Yes (Other)
  Sender: FDA-Public Use
  Company Number: CA-PFIZER INC-2014123295

PATIENT
  Age: 73 Year
  Sex: Female

DRUGS (14)
  1. AMLODIPINE BESILATE [Suspect]
     Dosage: UNK MG, UNK
     Route: 048
  2. PANTOPRAZOLE [Suspect]
     Dosage: 40 MG
     Route: 048
  3. HYDROCHLOROTHIAZIDE [Suspect]
     Dosage: 160 MG
     Route: 048
  4. BUPRENORPHINE HYDROCHLORIDE [Suspect]
     Dosage: UNK
     Route: 062
  5. CATAPRES [Suspect]
     Dosage: UNK
     Route: 048
  6. CYCLOBENZAPRINE [Suspect]
     Dosage: UNK
     Route: 048
  7. DOXAZOSIN MESYLATE [Suspect]
     Dosage: 1 MG
     Route: 048
  8. RIVOTRIL [Suspect]
     Dosage: 0.5 MG
     Route: 048
  9. SOTALOL [Suspect]
     Dosage: 80 MG
     Route: 048
  10. ACETAMINOPHEN [Concomitant]
     Dosage: UNK
  11. ACETYLSALICYLIC ACID [Concomitant]
     Dosage: UNK
  12. IMOVANE [Concomitant]
     Dosage: UNK
  13. LACTULOSE [Concomitant]
     Dosage: UNK
  14. LORAZEPAM [Concomitant]
     Dosage: UNK

REACTIONS (1)
  - Urinary incontinence [Unknown]
